FAERS Safety Report 24747625 (Version 2)
Quarter: 2025Q3

REPORT INFORMATION
  Report Type: Spontaneous
  Country: US (occurrence: US)
  Receive Date: 20241218
  Receipt Date: 20250923
  Transmission Date: 20251020
  Serious: Yes (Other)
  Sender: COOPERSURGICAL
  Company Number: US-COOPERSURGICAL, INC.-2024CPS003928

PATIENT
  Age: 21 Year
  Sex: Female
  Weight: 50.794 kg

DRUGS (3)
  1. PARAGARD T 380A [Suspect]
     Active Substance: COPPER
     Indication: Contraception
     Route: 015
     Dates: start: 2009
  2. UNSPECIFIED INGREDIENT [Suspect]
     Active Substance: UNSPECIFIED INGREDIENT
  3. UNSPECIFIED INGREDIENT [Concomitant]
     Active Substance: UNSPECIFIED INGREDIENT

REACTIONS (26)
  - Surgery [Recovered/Resolved]
  - Seizure [Unknown]
  - Reproductive complication associated with device [Unknown]
  - Abortion spontaneous [Recovered/Resolved]
  - Device breakage [Recovered/Resolved]
  - Foreign body in reproductive tract [Recovered/Resolved]
  - Complication of device removal [Recovered/Resolved]
  - Embedded device [Recovered/Resolved]
  - Procedural pain [Unknown]
  - Psychological trauma [Unknown]
  - Emotional disorder [Unknown]
  - Uterine pain [Unknown]
  - Uterine enlargement [Recovered/Resolved]
  - Sensation of foreign body [Recovered/Resolved]
  - Procedural pain [Recovered/Resolved]
  - Pelvic pain [Recovered/Resolved]
  - Dyspareunia [Unknown]
  - Heavy menstrual bleeding [Unknown]
  - Vaginal discharge [Recovered/Resolved]
  - Back pain [Unknown]
  - Device expulsion [Recovered/Resolved]
  - Vaginal haemorrhage [Unknown]
  - Abdominal pain [Unknown]
  - Amenorrhoea [Unknown]
  - Menstruation irregular [Unknown]
  - Abnormal uterine bleeding [Unknown]

NARRATIVE: CASE EVENT DATE: 20130111
